FAERS Safety Report 5405070-X (Version None)
Quarter: 2007Q3

REPORT INFORMATION
  Report Type: 
  Country: None (occurrence: None)
  Receive Date: 20070803
  Receipt Date: 20070730
  Transmission Date: 20080115
  Serious: Yes (Other)
  Sender: FDA-Public Use
  Company Number: NL-ASTRAZENECA-2007AC00965

PATIENT
  Age: 19192 Day
  Sex: Male
  Weight: 85 kg

DRUGS (9)
  1. CRESTOR [Suspect]
     Indication: HYPERCHOLESTEROLAEMIA
     Route: 048
     Dates: start: 20070520, end: 20070525
  2. ACTOS [Concomitant]
     Indication: DIABETES MELLITUS
  3. AMARYL [Concomitant]
     Indication: DIABETES MELLITUS
  4. NORVASC [Concomitant]
     Indication: HYPERTENSION
  5. AMLODIPINE [Concomitant]
  6. METFORMIN HCL [Concomitant]
  7. ARTHROTEC [Concomitant]
     Indication: MUSCLE DISORDER
  8. IBUPROFEN [Concomitant]
     Dates: end: 20070621
  9. ACE INHIBITOR [Concomitant]

REACTIONS (1)
  - FACIAL PALSY [None]
